FAERS Safety Report 25837923 (Version 1)
Quarter: 2025Q3

REPORT INFORMATION
  Report Type: Spontaneous
  Country: ID (occurrence: ID)
  Receive Date: 20250923
  Receipt Date: 20250923
  Transmission Date: 20251021
  Serious: Yes (Other)
  Sender: ADMA BIOLOGICS
  Company Number: ID-ADMA BIOLOGICS INC.-ID-2025ADM000293

PATIENT
  Age: 32 Year
  Sex: Female

DRUGS (1)
  1. HUMAN IMMUNOGLOBULIN G [Suspect]
     Active Substance: HUMAN IMMUNOGLOBULIN G
     Indication: COVID-19
     Route: 042

REACTIONS (3)
  - Bradycardia [Recovered/Resolved]
  - Hypertension [Unknown]
  - Off label use [Unknown]
